FAERS Safety Report 5692980-1 (Version None)
Quarter: 2008Q2

REPORT INFORMATION
  Report Type: 
  Country: None (occurrence: None)
  Receive Date: 20080403
  Receipt Date: 20080324
  Transmission Date: 20081010
  Serious: No
  Sender: FDA-Public Use
  Company Number: US-ELI_LILLY_AND_COMPANY-US200803005392

PATIENT
  Sex: Male

DRUGS (4)
  1. ZYPREXA [Suspect]
     Dosage: 15 MG, DAILY (1/D)
     Dates: start: 20080213, end: 20080319
  2. ZYPREXA [Suspect]
     Dosage: 20 MG, DAILY (1/D)
  3. LAMICTAL [Concomitant]
  4. TRAZODONE HCL [Concomitant]

REACTIONS (1)
  - THROMBOCYTOPENIA [None]
